FAERS Safety Report 16423498 (Version 1)
Quarter: 2019Q2

REPORT INFORMATION
  Report Type: Spontaneous
  Country: CA (occurrence: CA)
  Receive Date: 20190613
  Receipt Date: 20190613
  Transmission Date: 20190711
  Serious: Yes (Other)
  Sender: FDA-Public Use
  Company Number: CA-CELLTRION INC.-2018CA022177

PATIENT

DRUGS (17)
  1. INFLECTRA [Suspect]
     Active Substance: INFLIXIMAB-DYYB
     Dosage: 400 MG WEEK 2 AND 6, THEN EVERY 8 WEEKS
     Route: 042
     Dates: start: 20180814, end: 20180814
  2. INFLECTRA [Suspect]
     Active Substance: INFLIXIMAB-DYYB
     Dosage: 700 MG (Q 6 WEEKS, THEN EVERY 8 WEEKS)
     Route: 042
     Dates: start: 20180907
  3. INFLECTRA [Suspect]
     Active Substance: INFLIXIMAB-DYYB
     Indication: COLITIS ULCERATIVE
     Dosage: 400 MG, WEEK 2 AND 6, THEN EVERY 8 WEEKS
     Route: 042
     Dates: start: 20180727
  4. INFLECTRA [Suspect]
     Active Substance: INFLIXIMAB-DYYB
     Dosage: 700 MG (Q 6 WEEKS, THEN EVERY 8 WEEKS)
     Route: 042
     Dates: start: 20181228
  5. SOLU-MEDROL [Concomitant]
     Active Substance: METHYLPREDNISOLONE SODIUM SUCCINATE
     Dosage: 100 MG, UNK
     Route: 042
     Dates: start: 20180722, end: 20180814
  6. DALTEPARIN [Concomitant]
     Active Substance: DALTEPARIN
     Dosage: 5000 UNITS, DAILY
     Route: 058
     Dates: start: 20180722
  7. INFLECTRA [Suspect]
     Active Substance: INFLIXIMAB-DYYB
     Dosage: 700 MG (Q 6 WEEKS, THEN EVERY 8 WEEKS)
     Route: 042
     Dates: start: 20181102, end: 20181102
  8. MEZAVANT [Concomitant]
     Active Substance: MESALAMINE
     Dosage: 4.8 G, 1X/DAY
  9. CORTISONE [Concomitant]
     Active Substance: CORTISONE\HYDROCORTISONE
     Dosage: UNK, 1X/DAY (HS)
  10. BENADRYL [Concomitant]
     Active Substance: DIPHENHYDRAMINE HYDROCHLORIDE
     Indication: INFUSION RELATED REACTION
     Dosage: 50 MG, SINGLE
     Route: 048
     Dates: start: 20180814, end: 20180814
  11. CALCIUM [Concomitant]
     Active Substance: CALCIUM
     Dosage: UNK
  12. CORTIFOAM [Concomitant]
     Active Substance: HYDROCORTISONE ACETATE
     Dosage: UNK
     Dates: start: 20180718
  13. VENOFER [Concomitant]
     Active Substance: IRON SUCROSE
     Dosage: 300 MG X 3 DOSES
     Dates: start: 20180722, end: 20180802
  14. PREDNISONE. [Concomitant]
     Active Substance: PREDNISONE
     Dosage: 40 MG, DAILY, TAPERING BY 5 MG/WEEK UNTIL OFF
     Route: 048
  15. VITAMIN D 2000 [Concomitant]
     Active Substance: VITAMIN D NOS
     Dosage: UNK
  16. INFLECTRA [Suspect]
     Active Substance: INFLIXIMAB-DYYB
     Dosage: 400 MG, WEEK 2 AND 6, THEN EVERY 8 WEEKS
     Route: 042
     Dates: start: 20180730, end: 20180730
  17. ASPIRIN. [Concomitant]
     Active Substance: ASPIRIN
     Dosage: 4 PILLS, DAILY

REACTIONS (18)
  - Urticaria [Recovering/Resolving]
  - Platelet count increased [Unknown]
  - White blood cell count increased [Unknown]
  - Erythema [Recovering/Resolving]
  - Rash pustular [Unknown]
  - Product use issue [Unknown]
  - Off label use [Unknown]
  - Toothache [Unknown]
  - Gastrointestinal disorder [Unknown]
  - Condition aggravated [Recovering/Resolving]
  - Heart rate irregular [Unknown]
  - Serum ferritin decreased [Unknown]
  - Faeces discoloured [Unknown]
  - Periodontitis [Not Recovered/Not Resolved]
  - Pallor [Unknown]
  - Rash [Unknown]
  - Swelling face [Unknown]
  - Blood albumin decreased [Unknown]

NARRATIVE: CASE EVENT DATE: 20180814
